FAERS Safety Report 18328827 (Version 1)
Quarter: 2020Q3

REPORT INFORMATION
  Report Type: Spontaneous
  Country: FR (occurrence: FR)
  Receive Date: 20200930
  Receipt Date: 20200930
  Transmission Date: 20201103
  Serious: Yes (Hospitalization, Other)
  Sender: FDA-Public Use
  Company Number: FR-MYLANLABS-2020M1041885

PATIENT
  Age: 71 Year
  Sex: Male

DRUGS (2)
  1. SERTRALINE [Suspect]
     Active Substance: SERTRALINE HYDROCHLORIDE
     Indication: MAJOR DEPRESSION
     Dosage: 50 MILLIGRAM, QD SEVERAL YEARS
     Dates: end: 20171109
  2. PAROXETINE. [Suspect]
     Active Substance: PAROXETINE
     Indication: MAJOR DEPRESSION
     Dosage: UNK
     Dates: start: 2017

REACTIONS (5)
  - Epistaxis [Recovered/Resolved]
  - Platelet dysfunction [Recovered/Resolved]
  - Anaemia [Recovered/Resolved]
  - Platelet disorder [Recovered/Resolved]
  - Thrombocytopenia [Recovered/Resolved]

NARRATIVE: CASE EVENT DATE: 2015
